FAERS Safety Report 25234982 (Version 2)
Quarter: 2025Q2

REPORT INFORMATION
  Report Type: Spontaneous
  Country: US (occurrence: US)
  Receive Date: 20250424
  Receipt Date: 20250604
  Transmission Date: 20250717
  Serious: No
  Sender: ELI LILLY AND COMPANY
  Company Number: US-ELI_LILLY_AND_COMPANY-US202504012659

PATIENT
  Age: 76 Year
  Sex: Female

DRUGS (3)
  1. TERIPARATIDE [Suspect]
     Active Substance: TERIPARATIDE
     Indication: Product used for unknown indication
     Route: 065
     Dates: start: 20250326
  2. TERIPARATIDE [Suspect]
     Active Substance: TERIPARATIDE
     Indication: Product used for unknown indication
     Route: 065
     Dates: start: 20250326
  3. TERIPARATIDE [Suspect]
     Active Substance: TERIPARATIDE
     Route: 065
     Dates: start: 20250602

REACTIONS (1)
  - Incorrect dose administered by device [Unknown]
